FAERS Safety Report 5030092-0 (Version None)
Quarter: 2006Q2

REPORT INFORMATION
  Report Type: 
  Country: None (occurrence: None)
  Receive Date: 20060614
  Receipt Date: 20060101
  Transmission Date: 20061013
  Serious: Yes (Hospitalization)
  Sender: FDA-Public Use
  Company Number: 2006R5-02455

PATIENT
  Age: 60 Year
  Sex: Female
  Weight: 75 kg

DRUGS (1)
  1. AMOXICILLINA + CLAVULANATO DE POTASSIO(CLAVULANIC ACID, AMOXICILLIN TR [Suspect]
     Indication: EAR INFECTION
     Dosage: 625 MG, SINGLE, ORAL
     Route: 048

REACTIONS (2)
  - ANAPHYLACTIC SHOCK [None]
  - RESPIRATORY FAILURE [None]
